FAERS Safety Report 6638157-4 (Version None)
Quarter: 2010Q1

REPORT INFORMATION
  Report Type: 
  Country: None (occurrence: None)
  Receive Date: 20100315
  Receipt Date: 20100315
  Transmission Date: 20100710
  Serious: Yes (Other)
  Sender: FDA-Public Use
  Company Number: None

PATIENT
  Age: 44 Year
  Sex: Male
  Weight: 110 kg

DRUGS (2)
  1. HYDROMORPHONE HCL [Suspect]
     Indication: PAIN
     Dosage: 2 MG PRN IV
     Route: 042
     Dates: start: 20090624, end: 20090629
  2. NICOTINE [Suspect]
     Indication: SMOKING CESSATION THERAPY
     Dosage: 7 MG EVERY DAY TOP
     Route: 061
     Dates: start: 20090619

REACTIONS (2)
  - CONVULSION [None]
  - FALL [None]
